FAERS Safety Report 16097127 (Version 3)
Quarter: 2019Q2

REPORT INFORMATION
  Report Type: Spontaneous
  Country: GR (occurrence: GR)
  Receive Date: 20190320
  Receipt Date: 20190409
  Transmission Date: 20190711
  Serious: Yes (Death, Other)
  Sender: FDA-Public Use
  Company Number: GR-BRACCO-2019GR01174

PATIENT
  Age: 41 Year
  Sex: Male

DRUGS (12)
  1. SONOVUE [Suspect]
     Active Substance: SULFUR HEXAFLUORIDE
     Indication: ECHOCARDIOGRAM
     Dosage: 0.70 - 0.80 ML, SINGLE DOSE
     Route: 042
     Dates: start: 20190303, end: 20190303
  2. LOSEC [Concomitant]
     Active Substance: OMEPRAZOLE
  3. VISIPAQUE [Concomitant]
     Active Substance: IODIXANOL
     Indication: COMPUTERISED TOMOGRAM THORAX
     Dosage: 70 ML, SINGLE
     Route: 042
     Dates: start: 20190228, end: 20190228
  4. MEDROL [Concomitant]
     Active Substance: METHYLPREDNISOLONE
     Indication: PERICARDIAL EFFUSION
     Dosage: 16 MG, BID
     Dates: start: 20190204, end: 20190211
  5. SALINE                             /00075401/ [Concomitant]
     Active Substance: SODIUM CHLORIDE
     Dosage: 7.5 ML
     Dates: start: 20190303, end: 20190303
  6. SINTROM [Concomitant]
     Active Substance: ACENOCOUMAROL
     Indication: CARDIAC VALVE PROSTHESIS USER
     Dosage: 4 MG
     Route: 048
     Dates: start: 20190228, end: 20190303
  7. FENISTIL [Concomitant]
     Active Substance: DIMETHINDENE
     Indication: PROPHYLAXIS
     Dosage: 1 GTT
     Route: 042
     Dates: start: 20190228, end: 20190228
  8. MEDROL [Concomitant]
     Active Substance: METHYLPREDNISOLONE
     Indication: PERICARDIAL EFFUSION
     Dosage: 8 MG, BID
     Route: 048
     Dates: start: 20190219, end: 20190224
  9. SOLU-CORTEF [Concomitant]
     Active Substance: HYDROCORTISONE SODIUM SUCCINATE
     Indication: PROPHYLAXIS
     Dosage: 250 MG, SINGLE
     Route: 042
     Dates: start: 20190228, end: 20190228
  10. MEDROL [Concomitant]
     Active Substance: METHYLPREDNISOLONE
     Indication: PERICARDIAL EFFUSION
     Dosage: 24 MG, QD, 16MG IN THE MORNING, 8MG IN THE EVENING
     Route: 048
     Dates: start: 20190212, end: 20190218
  11. CONCOR [Concomitant]
     Active Substance: BISOPROLOL FUMARATE
     Indication: TACHYCARDIA
     Dosage: 5 MG, QD
     Route: 048
     Dates: start: 20190301, end: 20190303
  12. MEDROL [Concomitant]
     Active Substance: METHYLPREDNISOLONE
     Indication: PERICARDIAL EFFUSION
     Dosage: 12 MG, QD, 8MG IN THE MORNING, 4MG IN THE EVENING
     Route: 048
     Dates: start: 20190225, end: 20190303

REACTIONS (7)
  - Anaphylactic reaction [Fatal]
  - Bradycardia [Unknown]
  - Cyanosis [Unknown]
  - Loss of consciousness [Unknown]
  - Cardiac arrest [Fatal]
  - Discomfort [Unknown]
  - Atrioventricular block [Unknown]

NARRATIVE: CASE EVENT DATE: 20190303
